FAERS Safety Report 4771928-8 (Version None)
Quarter: 2005Q3

REPORT INFORMATION
  Report Type: 
  Country: None (occurrence: None)
  Receive Date: 20050916
  Receipt Date: 20050910
  Transmission Date: 20060218
  Serious: Yes (Life-Threatening)
  Sender: FDA-Public Use
  Company Number: GB-GLAXOSMITHKLINE-B0393474A

PATIENT
  Age: 2 Year
  Sex: Female
  Weight: 15 kg

DRUGS (1)
  1. LAMOTRIGINE [Suspect]
     Dosage: 300MG UNKNOWN
     Route: 048
     Dates: start: 20050829

REACTIONS (2)
  - FEELING JITTERY [None]
  - HYPERSOMNIA [None]
